FAERS Safety Report 21024873 (Version 3)
Quarter: 2022Q4

REPORT INFORMATION
  Report Type: Spontaneous
  Country: US (occurrence: US)
  Receive Date: 20220629
  Receipt Date: 20221003
  Transmission Date: 20230113
  Serious: Yes (Other)
  Sender: FDA-Public Use
  Company Number: US-SA-SAC20220628001885

PATIENT
  Age: 10 Year
  Sex: Male

DRUGS (8)
  1. ELOCTATE [Suspect]
     Active Substance: EFMOROCTOCOG ALFA
     Indication: Factor VIII deficiency
     Dosage: 245 U
     Route: 042
     Dates: start: 20220601
  2. ELOCTATE [Suspect]
     Active Substance: EFMOROCTOCOG ALFA
     Indication: Factor VIII deficiency
     Dosage: 245 U
     Route: 042
     Dates: start: 20220601
  3. ELOCTATE [Suspect]
     Active Substance: EFMOROCTOCOG ALFA
     Indication: Prophylaxis
     Dosage: 2159 U
     Route: 042
     Dates: start: 202206
  4. ELOCTATE [Suspect]
     Active Substance: EFMOROCTOCOG ALFA
     Indication: Prophylaxis
     Dosage: 2159 U
     Route: 042
     Dates: start: 202206
  5. ELOCTATE [Suspect]
     Active Substance: EFMOROCTOCOG ALFA
     Dosage: 2425 U, SLOW IV PUSH TWO TIMES WEEKLY AND DAILY AS NEEDED
     Route: 042
     Dates: start: 2022
  6. ELOCTATE [Suspect]
     Active Substance: EFMOROCTOCOG ALFA
     Dosage: 2425 U, SLOW IV PUSH TWO TIMES WEEKLY AND DAILY AS NEEDED
     Route: 042
     Dates: start: 2022
  7. ELOCTATE [Suspect]
     Active Substance: EFMOROCTOCOG ALFA
     Dosage: 245 U, QOW
     Route: 065
     Dates: start: 2022
  8. ELOCTATE [Suspect]
     Active Substance: EFMOROCTOCOG ALFA
     Dosage: 245 U, QOW
     Route: 065
     Dates: start: 2022

REACTIONS (1)
  - Haemorrhage [Recovering/Resolving]

NARRATIVE: CASE EVENT DATE: 20220613
